FAERS Safety Report 6109640-5 (Version None)
Quarter: 2009Q1

REPORT INFORMATION
  Report Type: 
  Country: None (occurrence: None)
  Receive Date: 20090310
  Receipt Date: 20080117
  Transmission Date: 20090719
  Serious: No
  Sender: FDA-Public Use
  Company Number: A0703756A

PATIENT
  Age: 26 Year
  Sex: Female

DRUGS (1)
  1. NICORETTE [Suspect]
     Dates: start: 20080114

REACTIONS (2)
  - MIGRAINE [None]
  - PHOTOSENSITIVITY REACTION [None]
